FAERS Safety Report 14272078 (Version 4)
Quarter: 2018Q2

REPORT INFORMATION
  Report Type: Report from Study
  Country: JP (occurrence: JP)
  Receive Date: 20171211
  Receipt Date: 20180409
  Transmission Date: 20180711
  Serious: Yes (Hospitalization, Other)
  Sender: FDA-Public Use
  Company Number: JP-BRISTOL-MYERS SQUIBB COMPANY-BMS-2017-112069

PATIENT
  Age: 56 Year
  Sex: Female

DRUGS (1)
  1. NIVOLUMAB [Suspect]
     Active Substance: NIVOLUMAB
     Indication: HEAD AND NECK CANCER METASTATIC
     Dosage: 3 MG/KG, UNK
     Route: 041
     Dates: start: 20170424

REACTIONS (6)
  - Decreased appetite [Unknown]
  - Hypotension [Recovered/Resolved]
  - Diarrhoea [Unknown]
  - Haemoptysis [Unknown]
  - Haemoglobin decreased [Unknown]
  - Femoral neck fracture [Recovered/Resolved]

NARRATIVE: CASE EVENT DATE: 20170508
